FAERS Safety Report 4300384-9 (Version None)
Quarter: 2004Q1

REPORT INFORMATION
  Report Type: 
  Country: None (occurrence: None)
  Receive Date: 20040220
  Receipt Date: 20040209
  Transmission Date: 20041129
  Serious: Yes (Other)
  Sender: FDA-Public Use
  Company Number: GB-GLAXOSMITHKLINE-B0322714A

PATIENT
  Age: 39 Year
  Sex: Female
  Weight: 95 kg

DRUGS (4)
  1. ZYBAN [Suspect]
     Dosage: 150MG PER DAY
     Route: 048
     Dates: start: 20031201, end: 20031204
  2. LANSOPRAZOLE [Concomitant]
     Indication: DYSPEPSIA
     Dosage: 15MG PER DAY
     Route: 048
     Dates: start: 20010207
  3. TRANEXAMIC ACID [Concomitant]
     Indication: DYSFUNCTIONAL UTERINE BLEEDING
     Dosage: 1.5G PER DAY
     Route: 048
     Dates: start: 20030724
  4. NORETHISTERONE [Concomitant]
     Indication: DYSFUNCTIONAL UTERINE BLEEDING
     Dosage: 5MG PER DAY
     Route: 048
     Dates: start: 20030729

REACTIONS (1)
  - SKIN LESION [None]
